FAERS Safety Report 19361108 (Version 1)
Quarter: 2021Q2

REPORT INFORMATION
  Report Type: Spontaneous
  Country: US (occurrence: US)
  Receive Date: 20210601
  Receipt Date: 20210601
  Transmission Date: 20210717
  Serious: Yes (Hospitalization, Other)
  Sender: FDA-Public Use
  Company Number: US-SA-2021SA174816

PATIENT
  Sex: Female

DRUGS (1)
  1. FABRAZYME [Suspect]
     Active Substance: AGALSIDASE BETA
     Indication: FABRY^S DISEASE
     Dosage: 160 MG
     Route: 042

REACTIONS (12)
  - Myocardial necrosis marker increased [Unknown]
  - Condition aggravated [Unknown]
  - Nephrolithiasis [Unknown]
  - Proteinuria [Unknown]
  - Hypertension [Unknown]
  - Fatigue [Unknown]
  - Paraesthesia [Unknown]
  - Hypoaesthesia [Unknown]
  - Pain [Unknown]
  - Cardiac disorder [Unknown]
  - Temperature intolerance [Unknown]
  - Burning sensation [Unknown]
